FAERS Safety Report 16276423 (Version 1)
Quarter: 2019Q2

REPORT INFORMATION
  Report Type: Spontaneous
  Country: PT (occurrence: PT)
  Receive Date: 20190506
  Receipt Date: 20190506
  Transmission Date: 20190711
  Serious: Yes (Hospitalization)
  Sender: FDA-Public Use
  Company Number: PT-TEVA-2019-PT-1045152

PATIENT
  Age: 32 Year
  Sex: Male

DRUGS (4)
  1. RISPERIDONE. [Concomitant]
     Active Substance: RISPERIDONE
  2. VALPROIC ACID. [Concomitant]
     Active Substance: VALPROIC ACID
  3. LEVOMEPROMAZINE [Suspect]
     Active Substance: LEVOMEPROMAZINE
     Dosage: 2 TOMAS OF 100MG, IM
     Route: 030
     Dates: start: 20190413, end: 20190413
  4. HALOPERIDOL RATIOPHARM 5 MG/ML SOLU??O INJECT?VEL [Suspect]
     Active Substance: HALOPERIDOL
     Dosage: 10 MG, SINGLE DOSE
     Route: 030
     Dates: start: 20190413, end: 20190413

REACTIONS (1)
  - Sedation [Recovered/Resolved]

NARRATIVE: CASE EVENT DATE: 20190414
